FAERS Safety Report 7323501-5 (Version None)
Quarter: 2011Q1

REPORT INFORMATION
  Report Type: 
  Country: None (occurrence: None)
  Receive Date: 20110301
  Receipt Date: 20110217
  Transmission Date: 20110831
  Serious: Yes (Other)
  Sender: FDA-Public Use
  Company Number: PHHY2010DE87688

PATIENT
  Sex: Male

DRUGS (2)
  1. CLOPIDOGREL [Suspect]
     Indication: INFARCTION
  2. LEPONEX [Suspect]
     Indication: SCHIZOPHRENIA
     Dosage: 500 MG DAILY
     Route: 048

REACTIONS (5)
  - WHITE BLOOD CELL COUNT DECREASED [None]
  - SPLENOMEGALY [None]
  - NON-HODGKIN'S LYMPHOMA [None]
  - PLATELET COUNT DECREASED [None]
  - CEREBRAL INFARCTION [None]
